FAERS Safety Report 23496591 (Version 1)
Quarter: 2024Q1

REPORT INFORMATION
  Report Type: Spontaneous
  Country: US (occurrence: None)
  Receive Date: 20240208
  Receipt Date: 20240208
  Transmission Date: 20240410
  Serious: Yes (Other)
  Sender: FDA-Public Use
  Company Number: None

PATIENT
  Age: 25 Year
  Sex: Male
  Weight: 63.5 kg

DRUGS (1)
  1. HERBALS\MITRAGYNINE [Suspect]
     Active Substance: HERBALS\MITRAGYNINE
     Indication: Substance use

REACTIONS (7)
  - Drug dependence [None]
  - Drug dependence [None]
  - Withdrawal syndrome [None]
  - Restless legs syndrome [None]
  - Night sweats [None]
  - Insomnia [None]
  - Product advertising issue [None]

NARRATIVE: CASE EVENT DATE: 20240130
